FAERS Safety Report 5421485-8 (Version None)
Quarter: 2007Q3

REPORT INFORMATION
  Report Type: 
  Country: None (occurrence: None)
  Receive Date: 20070817
  Receipt Date: 20070806
  Transmission Date: 20080115
  Serious: Yes (Death, Hospitalization)
  Sender: FDA-Public Use
  Company Number: 159690ISR

PATIENT
  Age: 42 Year
  Sex: Female

DRUGS (6)
  1. DOXORUBICIN [Suspect]
     Dosage: INTRAVENOUS (NOT OTHERWISE SPECIFIED)
     Route: 042
     Dates: start: 20070111, end: 20070111
  2. VINCRISTINE [Suspect]
     Dosage: INTRAVENOUS (NOT OTHERWISE SPECIFIED)
     Route: 042
     Dates: start: 20070111, end: 20070111
  3. CYCLOPHOSPHAMIDE [Suspect]
     Dosage: INTRAVENOUS (NOT OTHERWISE SPECIFIED)
     Route: 042
     Dates: start: 20070111, end: 20070111
  4. PREDNISONE [Concomitant]
  5. KETOPROFEN [Concomitant]
  6. OXYCODONE HYDROCHLORIDE [Concomitant]

REACTIONS (15)
  - ANAEMIA [None]
  - BACTERIAL INFECTION [None]
  - CONFUSIONAL STATE [None]
  - DISSEMINATED INTRAVASCULAR COAGULATION [None]
  - HYPERKALAEMIA [None]
  - HYPERTHERMIA [None]
  - HYPOTENSION [None]
  - INFLAMMATION [None]
  - LUNG INFECTION [None]
  - METABOLIC ACIDOSIS [None]
  - NEUTROPENIC SEPSIS [None]
  - OXYGEN SATURATION DECREASED [None]
  - RENAL FAILURE [None]
  - SEPTIC SHOCK [None]
  - TACHYCARDIA [None]
